FAERS Safety Report 20333497 (Version 1)
Quarter: 2022Q1

REPORT INFORMATION
  Report Type: Spontaneous
  Country: CA (occurrence: CA)
  Receive Date: 20220113
  Receipt Date: 20220113
  Transmission Date: 20220423
  Serious: Yes (Death)
  Sender: FDA-Public Use
  Company Number: CA-PFIZER INC-202100993315

PATIENT
  Age: 63 Year
  Sex: Female
  Weight: 59.3 kg

DRUGS (4)
  1. BRAFTOVI [Suspect]
     Active Substance: ENCORAFENIB
     Indication: Colon cancer
     Dosage: 300 MG FOR 28 DAYS
     Route: 048
     Dates: start: 20210914
  2. MAGNESIUM [Concomitant]
     Active Substance: MAGNESIUM
     Dosage: 1500 MG ONE TO THREE TIMES DAILY
     Route: 048
     Dates: start: 20210902
  3. PROCHLORPERAZINE [Concomitant]
     Active Substance: PROCHLORPERAZINE
     Indication: Nausea
     Dosage: 10 MG EVERY 4 TO 6 HOURS
     Route: 048
     Dates: start: 20210902
  4. PROCHLORPERAZINE [Concomitant]
     Active Substance: PROCHLORPERAZINE
     Indication: Vomiting

REACTIONS (2)
  - Death [Fatal]
  - Off label use [Unknown]
